FAERS Safety Report 8037341-5 (Version None)
Quarter: 2012Q1

REPORT INFORMATION
  Report Type: 
  Country: None (occurrence: None)
  Receive Date: 20120111
  Receipt Date: 20111227
  Transmission Date: 20120608
  Serious: Yes (Death, Hospitalization)
  Sender: FDA-Public Use
  Company Number: FR-CELGENEUS-056-50794-11122241

PATIENT
  Sex: Male
  Weight: 90 kg

DRUGS (13)
  1. VIDAZA [Suspect]
     Dosage: 100 MILLIGRAM
     Route: 041
     Dates: start: 20111212, end: 20111222
  2. LASIX [Concomitant]
     Indication: CARDIAC DISORDER
     Dosage: 60 MILLIGRAM
     Route: 048
     Dates: start: 20000101
  3. AMLODIPINE BESYLATE [Concomitant]
     Indication: HYPERTENSION
     Dosage: 5 MILLIGRAM
     Route: 048
  4. ACTRAPID [Concomitant]
     Dosage: 100 IU/ML
     Route: 041
     Dates: start: 20111001
  5. ACETAMINOPHEN [Concomitant]
     Dosage: 3 GRAM
     Route: 065
  6. FORADIL [Concomitant]
     Indication: HYPERTENSION
     Dosage: 12 MILLIGRAM
     Route: 048
     Dates: start: 20000101
  7. CREON [Concomitant]
     Route: 065
  8. VIDAZA [Suspect]
     Dosage: 150 MILLIGRAM
     Route: 041
     Dates: start: 20111114, end: 20111212
  9. IDARUBICIN HCL [Suspect]
     Dosage: 20 MILLIGRAM
     Route: 041
     Dates: start: 20111114, end: 20111212
  10. NEURONTIN [Concomitant]
     Dosage: 900 MILLIGRAM
     Route: 065
  11. QUINAPRIL [Concomitant]
     Dosage: 20 MILLIGRAM
     Route: 065
  12. PLAVIX [Concomitant]
     Indication: CARDIAC DISORDER
     Dosage: 75 MILLIGRAM
     Route: 048
     Dates: start: 20000101
  13. CYMBALTA [Concomitant]
     Indication: DEPRESSION
     Dosage: 60 MILLIGRAM
     Route: 048

REACTIONS (8)
  - VOMITING [None]
  - MYOCARDIAL INFARCTION [None]
  - BLAST CELL COUNT INCREASED [None]
  - HAEMATOMA [None]
  - PNEUMONIA [None]
  - RENAL FAILURE [None]
  - OESOPHAGITIS [None]
  - LEUKOCYTOSIS [None]
